FAERS Safety Report 8573506-1 (Version None)
Quarter: 2012Q3

REPORT INFORMATION
  Report Type: 
  Country: None (occurrence: None)
  Receive Date: 20120806
  Receipt Date: 20120718
  Transmission Date: 20120928
  Serious: Yes (Life-Threatening, Other)
  Sender: FDA-Public Use
  Company Number: BE-009507513-2012SP036332

PATIENT

DRUGS (5)
  1. ROCURONIUM BROMIDE [Suspect]
     Indication: NEUROMUSCULAR BLOCKING THERAPY
     Dosage: UNK UNK, UNKNOWN
  2. CRIXOFOL [Concomitant]
     Dosage: UNK UNK, UNKNOWN
     Route: 065
  3. REMIFENTANIL HYDROCHLORIDE [Concomitant]
     Dosage: UNK UNK, UNKNOWN
     Route: 065
  4. CHLORHEXIDINE GLUCONATE [Concomitant]
     Dosage: UNK UNK, UNKNOWN
     Route: 065
  5. ISO-BETADINE [Concomitant]

REACTIONS (8)
  - HYPOTENSION [None]
  - TACHYCARDIA [None]
  - ERYTHEMA [None]
  - HYPOXIA [None]
  - FACE OEDEMA [None]
  - BRONCHOSPASM [None]
  - PERIORBITAL OEDEMA [None]
  - TYPE I HYPERSENSITIVITY [None]
